FAERS Safety Report 19476585 (Version 1)
Quarter: 2021Q2

REPORT INFORMATION
  Report Type: Spontaneous
  Country: JP (occurrence: JP)
  Receive Date: 20210630
  Receipt Date: 20210630
  Transmission Date: 20210717
  Serious: Yes (Life-Threatening, Other)
  Sender: FDA-Public Use
  Company Number: JP-AUROBINDO-AUR-APL-2021-027626

PATIENT
  Age: 84 Year
  Sex: Male

DRUGS (3)
  1. CHOP [Concomitant]
     Active Substance: CYCLOPHOSPHAMIDE\DOXORUBICIN\PREDNISONE\VINCRISTINE
     Indication: PRODUCT USED FOR UNKNOWN INDICATION
     Dosage: UNK
     Route: 065
  2. FOLOTYN [Suspect]
     Active Substance: PRALATREXATE
     Indication: ANGIOIMMUNOBLASTIC T-CELL LYMPHOMA STAGE III
     Dosage: 30 MILLIGRAM/SQ. METER
     Route: 042
  3. LEUCOVORIN. [Concomitant]
     Active Substance: LEUCOVORIN
     Indication: PRODUCT USED FOR UNKNOWN INDICATION
     Dosage: UNK
     Route: 065

REACTIONS (5)
  - Neutrophil count decreased [Unknown]
  - Mycobacterium avium complex infection [Unknown]
  - Anaemia [Unknown]
  - Platelet count decreased [Unknown]
  - Febrile neutropenia [Unknown]
